FAERS Safety Report 16825891 (Version 1)
Quarter: 2019Q3

REPORT INFORMATION
  Report Type: Spontaneous
  Country: US (occurrence: US)
  Receive Date: 20190919
  Receipt Date: 20190919
  Transmission Date: 20191005
  Serious: No
  Sender: FDA-Public Use
  Company Number: US-TEVA-2019-US-1110424

PATIENT
  Sex: Female

DRUGS (1)
  1. AJOVY [Suspect]
     Active Substance: FREMANEZUMAB-VFRM
     Indication: MIGRAINE
     Dosage: SELF-ADMINISTERED THE AJOVY ON 9/9/2019
     Route: 065
     Dates: start: 20190910

REACTIONS (4)
  - Product administration error [Unknown]
  - Taste disorder [Unknown]
  - Product storage error [Unknown]
  - Wrong technique in product usage process [Unknown]
